FAERS Safety Report 20918856 (Version 1)
Quarter: 2022Q2

REPORT INFORMATION
  Report Type: Spontaneous
  Country: GB (occurrence: GB)
  Receive Date: 20220606
  Receipt Date: 20220606
  Transmission Date: 20220720
  Serious: Yes (Other)
  Sender: FDA-Public Use
  Company Number: None

PATIENT
  Sex: Male

DRUGS (10)
  1. APIXABAN [Suspect]
     Active Substance: APIXABAN
     Indication: Atrial fibrillation
     Dosage: 5MG BD
  2. BISOPROLOL [Concomitant]
     Active Substance: BISOPROLOL
  3. BUPRENORPHINE [Concomitant]
     Active Substance: BUPRENORPHINE
  4. DOCUSATE [Concomitant]
     Active Substance: DOCUSATE
  5. LACTULOSE [Concomitant]
     Active Substance: LACTULOSE
  6. LEVOMEPROMAZINE [Concomitant]
     Active Substance: LEVOMEPROMAZINE
  7. MORPHINE [Concomitant]
     Active Substance: MORPHINE
  8. OMEPRAZOLE [Concomitant]
     Active Substance: OMEPRAZOLE
  9. PREGABALIN [Concomitant]
     Active Substance: PREGABALIN
  10. TAMSULOSIN [Concomitant]
     Active Substance: TAMSULOSIN

REACTIONS (2)
  - Medication error [Unknown]
  - Gastrointestinal haemorrhage [Recovered/Resolved]

NARRATIVE: CASE EVENT DATE: 20220519
